FAERS Safety Report 9006785 (Version 4)
Quarter: 2015Q3

REPORT INFORMATION
  Report Type: Report from Study
  Country: AR (occurrence: AR)
  Receive Date: 20130110
  Receipt Date: 20150706
  Transmission Date: 20151125
  Serious: Yes (Life-Threatening)
  Sender: FDA-Public Use
  Company Number: PHHY2013AR002131

PATIENT
  Sex: Male

DRUGS (4)
  1. DIOVAN [Suspect]
     Active Substance: VALSARTAN
     Indication: DYSURIA
     Dosage: 1 DF (160 MG), QD (PER DAY)
     Route: 048
  2. INSULIN [Concomitant]
     Active Substance: INSULIN NOS
     Indication: DIABETES MELLITUS
     Route: 065
  3. CIPROFLOXACIN. [Concomitant]
     Active Substance: CIPROFLOXACIN
     Indication: PRODUCT USED FOR UNKNOWN INDICATION
     Route: 065
  4. DIOVAN [Suspect]
     Active Substance: VALSARTAN
     Indication: HYPERTENSION
     Dosage: 1 DF (160 MG), QD (PER DAY)
     Route: 048

REACTIONS (9)
  - Penis disorder [Unknown]
  - Bladder disorder [Unknown]
  - Feeling abnormal [Unknown]
  - Infection [Unknown]
  - Localised infection [Unknown]
  - Off label use [Unknown]
  - Joint swelling [Unknown]
  - Blood pressure systolic decreased [Unknown]
  - Memory impairment [Unknown]
